FAERS Safety Report 10573907 (Version 1)
Quarter: 2014Q4

REPORT INFORMATION
  Report Type: Report from Study
  Country: TN (occurrence: TN)
  Receive Date: 20141110
  Receipt Date: 20141110
  Transmission Date: 20150529
  Serious: Yes (Death)
  Sender: FDA-Public Use
  Company Number: TN-SA-2014SA152074

PATIENT
  Age: 73 Year
  Sex: Male

DRUGS (4)
  1. ASPEGIC [Concomitant]
     Active Substance: ASPIRIN DL-LYSINE
     Route: 048
  2. CORDARONE [Concomitant]
     Active Substance: AMIODARONE HYDROCHLORIDE
     Route: 048
  3. PLAVIX [Suspect]
     Active Substance: CLOPIDOGREL BISULFATE
     Indication: MYOCARDIAL INFARCTION
     Route: 048
     Dates: start: 20140114, end: 20141026
  4. CAPTOPRIL. [Concomitant]
     Active Substance: CAPTOPRIL
     Route: 048

REACTIONS (1)
  - Lung infection [Fatal]

NARRATIVE: CASE EVENT DATE: 201410
